FAERS Safety Report 7131565-7 (Version None)
Quarter: 2010Q4

REPORT INFORMATION
  Report Type: 
  Country: None (occurrence: None)
  Receive Date: 20101201
  Receipt Date: 20101119
  Transmission Date: 20110411
  Serious: Yes (Hospitalization, Other)
  Sender: FDA-Public Use
  Company Number: US-ELI_LILLY_AND_COMPANY-US201011003374

PATIENT
  Sex: Male
  Weight: 68.027 kg

DRUGS (9)
  1. PRASUGREL HYDROCHLORIDE [Suspect]
     Indication: ACUTE CORONARY SYNDROME
     Dosage: 60 MG ONCE
     Dates: start: 20100727, end: 20100727
  2. PRASUGREL HYDROCHLORIDE [Suspect]
     Dosage: 10 MG, DAILY (1/D)
     Dates: start: 20100728
  3. ASPIRIN [Concomitant]
     Dosage: 325 MG, DAILY (1/D)
     Dates: start: 20100727
  4. CRESTOR [Concomitant]
     Indication: HYPERLIPIDAEMIA
     Dosage: 20 MG, DAILY (1/D)
     Route: 048
     Dates: start: 20100728
  5. COREG [Concomitant]
     Indication: HYPERTENSION
     Dosage: 25 MG, 2/D
     Route: 048
  6. DIOVAN [Concomitant]
     Indication: HYPERTENSION
     Dosage: 80 MG, DAILY (1/D)
     Route: 048
     Dates: start: 20100728
  7. PROTONIX [Concomitant]
     Indication: GASTROOESOPHAGEAL REFLUX DISEASE
     Dosage: 40 MG, UNK
     Dates: start: 20100728
  8. CYMBALTA [Concomitant]
     Indication: GENERALISED ANXIETY DISORDER
     Dosage: 30 MG, DAILY (1/D)
     Route: 048
  9. KLONOPIN [Concomitant]
     Indication: PANIC DISORDER
     Dosage: 0.5 MG, DAILY (1/D)
     Route: 048

REACTIONS (1)
  - MYOCARDIAL ISCHAEMIA [None]
